FAERS Safety Report 14433293 (Version 1)
Quarter: 2018Q1

REPORT INFORMATION
  Report Type: Spontaneous
  Country: US (occurrence: US)
  Receive Date: 20180124
  Receipt Date: 20180124
  Transmission Date: 20180509
  Serious: Yes (Hospitalization)
  Sender: FDA-Public Use
  Company Number: US-PIRAMAL CRITICAL CARE LIMITED-2017-PEL-003165

PATIENT

DRUGS (3)
  1. GABLOFEN [Suspect]
     Active Substance: BACLOFEN
     Dosage: UNK, 32% INCREASE IN DOSE CHANGE TO BOLUS DOSING
     Route: 037
     Dates: start: 20120213
  2. GABLOFEN [Suspect]
     Active Substance: BACLOFEN
     Indication: PRODUCT USED FOR UNKNOWN INDICATION
     Dosage: UNK
     Route: 037
  3. GABLOFEN [Suspect]
     Active Substance: BACLOFEN
     Dosage: UNK, 5% INCREASE IN DOSE
     Route: 037
     Dates: start: 20120301

REACTIONS (6)
  - Device occlusion [Recovered/Resolved]
  - Hypertonia [Recovered/Resolved]
  - Therapy non-responder [Unknown]
  - Muscle tightness [Recovered/Resolved]
  - Withdrawal syndrome [Recovered/Resolved]
  - Muscle spasticity [Recovered/Resolved]
